FAERS Safety Report 21549718 (Version 1)
Quarter: 2022Q4

REPORT INFORMATION
  Report Type: Spontaneous
  Country: US (occurrence: US)
  Receive Date: 20221103
  Receipt Date: 20221103
  Transmission Date: 20230112
  Serious: No
  Sender: FDA-Public Use
  Company Number: US-GSKCCFUS-Case-01540778_AE-87261

PATIENT
  Age: 45 Year
  Sex: Female

DRUGS (2)
  1. NUCALA [Suspect]
     Active Substance: MEPOLIZUMAB
     Indication: Product used for unknown indication
     Dosage: UNK
     Route: 058
  2. EMGALITY [Concomitant]
     Active Substance: GALCANEZUMAB-GNLM
     Indication: Product used for unknown indication
     Dosage: UNK

REACTIONS (3)
  - Exposure via skin contact [Unknown]
  - Wrong technique in device usage process [Unknown]
  - Accidental exposure to product [Unknown]

NARRATIVE: CASE EVENT DATE: 20221026
